FAERS Safety Report 20255140 (Version 1)
Quarter: 2021Q4

REPORT INFORMATION
  Report Type: Spontaneous
  Country: DE (occurrence: DE)
  Receive Date: 20211230
  Receipt Date: 20211230
  Transmission Date: 20220303
  Serious: Yes (Hospitalization)
  Sender: FDA-Public Use
  Company Number: DE-ADRED-07339-01

PATIENT
  Age: 81 Year
  Sex: Female
  Weight: 50 kg

DRUGS (3)
  1. TORSEMIDE [Suspect]
     Active Substance: TORSEMIDE
     Dosage: 5 MILLIGRAM DAILY; 1-0-0-0
     Route: 048
  2. EDOXABAN [Suspect]
     Active Substance: EDOXABAN
     Dosage: 30 MILLIGRAM DAILY; 1-0-0-0
     Route: 048
  3. METAMIZOL [Concomitant]
     Active Substance: METAMIZOLE SODIUM
     Dosage: 500 MG, REQUIREMENT, DROPS
     Route: 048

REACTIONS (5)
  - Weight decreased [Unknown]
  - Pain [Unknown]
  - Constipation [Unknown]
  - Oedema peripheral [Unknown]
  - Lymphoedema [Unknown]
